FAERS Safety Report 5844428-1 (Version None)
Quarter: 2008Q3

REPORT INFORMATION
  Report Type: 
  Country: None (occurrence: None)
  Receive Date: 20080811
  Receipt Date: 20080728
  Transmission Date: 20090109
  Serious: Yes (Hospitalization)
  Sender: FDA-Public Use
  Company Number: 2008IT004170

PATIENT
  Age: 42 Year
  Sex: Female

DRUGS (3)
  1. ALOXI         (PALONOSETRON HYDROCHLORIDE) INJECTION [Suspect]
     Indication: PROPHYLAXIS OF NAUSEA AND VOMITING
     Dosage: 0.25 MG, SINGLE, INTRAVENOUS
     Route: 042
     Dates: start: 20080605, end: 20080605
  2. 5-FU      /00098801/ (FLUOROURACIL) [Concomitant]
  3. CYCLOPHOSPHAMIDE [Concomitant]

REACTIONS (2)
  - CONVULSION [None]
  - TREMOR [None]
